FAERS Safety Report 11793719 (Version 1)
Quarter: 2015Q4

REPORT INFORMATION
  Report Type: Spontaneous
  Country: US (occurrence: None)
  Receive Date: 20151201
  Receipt Date: 20151201
  Transmission Date: 20160305
  Serious: No
  Sender: FDA-Public Use
  Company Number: None

PATIENT
  Age: 31 Year
  Sex: Male
  Weight: 86.18 kg

DRUGS (3)
  1. FINASTERIDE 5MG AUROBINDO PHARMA USA [Suspect]
     Active Substance: FINASTERIDE
     Indication: ANDROGENETIC ALOPECIA
     Route: 048
  2. FINASTERIDE. [Concomitant]
     Active Substance: FINASTERIDE
  3. FINASTERIDE 5MG AUROBINDO PHARMA USA [Suspect]
     Active Substance: FINASTERIDE
     Indication: PROSTATITIS
     Route: 048

REACTIONS (5)
  - Drug ineffective [None]
  - Product quality issue [None]
  - Alopecia [None]
  - Condition aggravated [None]
  - Product physical consistency issue [None]

NARRATIVE: CASE EVENT DATE: 20151116
